FAERS Safety Report 25081974 (Version 3)
Quarter: 2025Q1

REPORT INFORMATION
  Report Type: Spontaneous
  Country: US (occurrence: US)
  Receive Date: 20250317
  Receipt Date: 20250325
  Transmission Date: 20250408
  Serious: No
  Sender: ALEXION PHARMACEUTICALS
  Company Number: US-AstraZeneca-CH-00825332AP

PATIENT

DRUGS (3)
  1. BYDUREON BCISE [Suspect]
     Active Substance: EXENATIDE
     Indication: Product used for unknown indication
     Route: 065
  2. BYDUREON [Suspect]
     Active Substance: EXENATIDE
     Indication: Product used for unknown indication
     Route: 065
  3. BYETTA [Suspect]
     Active Substance: EXENATIDE
     Indication: Product used for unknown indication
     Route: 065

REACTIONS (12)
  - Injection site papule [Unknown]
  - Injection site haemorrhage [Unknown]
  - Needle issue [Unknown]
  - Incorrect dose administered by device [Unknown]
  - Device use issue [Unknown]
  - Extra dose administered [Unknown]
  - Device delivery system issue [Unknown]
  - Wrong technique in product usage process [Unknown]
  - Product label confusion [Unknown]
  - Device use issue [Unknown]
  - Device issue [Unknown]
  - Device malfunction [Unknown]
